FAERS Safety Report 9016167 (Version 1)
Quarter: 2013Q1

REPORT INFORMATION
  Report Type: Report from Study
  Country: US (occurrence: US)
  Receive Date: 20130116
  Receipt Date: 20130116
  Transmission Date: 20140127
  Serious: Yes (Other)
  Sender: FDA-Public Use
  Company Number: US-US-EMD SERONO, INC.-7187091

PATIENT
  Age: 46 None
  Sex: Male

DRUGS (2)
  1. REBIF [Suspect]
     Indication: MULTIPLE SCLEROSIS
     Route: 058
     Dates: start: 20120305
  2. CYMBALTA [Concomitant]
     Indication: PAIN IN EXTREMITY
     Dates: start: 201212

REACTIONS (3)
  - Optic atrophy [Unknown]
  - Micturition disorder [Unknown]
  - Injection site induration [Unknown]
